FAERS Safety Report 25548236 (Version 1)
Quarter: 2025Q3

REPORT INFORMATION
  Report Type: Spontaneous
  Country: RU (occurrence: RU)
  Receive Date: 20250714
  Receipt Date: 20250714
  Transmission Date: 20251020
  Serious: Yes (Other)
  Sender: ROCHE
  Company Number: RU-ROCHE-10000335708

PATIENT
  Age: 72 Year
  Sex: Female

DRUGS (1)
  1. IBANDRONIC ACID [Suspect]
     Active Substance: IBANDRONIC ACID
     Indication: Osteoporosis postmenopausal
     Route: 065

REACTIONS (6)
  - High turnover osteopathy [Unknown]
  - Nephrocalcinosis [Unknown]
  - Hyperparathyroidism primary [Unknown]
  - Osteoporosis [Unknown]
  - Osteodystrophy [Unknown]
  - Parathyroid tumour benign [Unknown]
